FAERS Safety Report 10349679 (Version 1)
Quarter: 2014Q3

REPORT INFORMATION
  Report Type: Spontaneous
  Country: TR (occurrence: None)
  Receive Date: 20140728
  Receipt Date: 20140728
  Transmission Date: 20150326
  Serious: Yes (Other)
  Sender: FDA-Public Use
  Company Number: IMP_07740_2014

PATIENT
  Age: 20 Year
  Sex: Male

DRUGS (1)
  1. VALPROIC ACID. [Suspect]
     Active Substance: VALPROIC ACID
     Indication: EPILEPSY
     Dosage: GRADUALLY INCREASED AND CONTINUED AT 3000 MG/DAY

REACTIONS (2)
  - Lymphadenopathy [None]
  - Gingival hyperplasia [None]
